FAERS Safety Report 17652398 (Version 1)
Quarter: 2020Q2

REPORT INFORMATION
  Report Type: Spontaneous
  Country: US (occurrence: US)
  Receive Date: 20200409
  Receipt Date: 20200409
  Transmission Date: 20200713
  Serious: No
  Sender: FDA-Public Use
  Company Number: US-BAUSCH-BL-2020-008132

PATIENT
  Sex: Female

DRUGS (3)
  1. TIMOPTIC [Suspect]
     Active Substance: TIMOLOL MALEATE
     Dosage: STOP DATE: SOMETIME IN 2018
     Route: 065
     Dates: start: 201804, end: 2018
  2. ISTALOL [Concomitant]
     Active Substance: TIMOLOL MALEATE
     Indication: PRODUCT USED FOR UNKNOWN INDICATION
     Dosage: USED IT FOR FEW WEEKS
     Dates: start: 201804, end: 201804
  3. TIMOPTIC [Suspect]
     Active Substance: TIMOLOL MALEATE
     Indication: PRODUCT USED FOR UNKNOWN INDICATION
     Route: 065
     Dates: start: 1989, end: 201801

REACTIONS (4)
  - Palpitations [Recovered/Resolved]
  - Therapy interrupted [Unknown]
  - Heart rate increased [Recovered/Resolved]
  - Dyspnoea [Recovered/Resolved]

NARRATIVE: CASE EVENT DATE: 2018
